FAERS Safety Report 5706150-1 (Version None)
Quarter: 2008Q2

REPORT INFORMATION
  Report Type: 
  Country: None (occurrence: None)
  Receive Date: 20080415
  Receipt Date: 20080403
  Transmission Date: 20081010
  Serious: Yes (Other)
  Sender: FDA-Public Use
  Company Number: US-PFIZER INC-2008029651

PATIENT
  Sex: Female
  Weight: 60.3 kg

DRUGS (6)
  1. LYRICA [Suspect]
     Dates: start: 20080328, end: 20080328
  2. ULTRAM [Concomitant]
  3. FOSAMAX [Concomitant]
  4. ZYRTEC [Concomitant]
  5. NASONEX [Concomitant]
  6. ZESTRIL [Concomitant]

REACTIONS (7)
  - ABASIA [None]
  - DIZZINESS [None]
  - GAIT DISTURBANCE [None]
  - HYPERTENSION [None]
  - MUSCLE TWITCHING [None]
  - NAUSEA [None]
  - SOMNOLENCE [None]
